FAERS Safety Report 4317572-8 (Version None)
Quarter: 2004Q1

REPORT INFORMATION
  Report Type: 
  Country: None (occurrence: None)
  Receive Date: 20040312
  Receipt Date: 20040302
  Transmission Date: 20041129
  Serious: Yes (Other)
  Sender: FDA-Public Use
  Company Number: 2004015200

PATIENT
  Age: 69 Year
  Sex: Female

DRUGS (8)
  1. LIPITOR [Suspect]
     Indication: HYPERLIPIDAEMIA
     Dosage: 10 MG (DAILY), ORAL
     Route: 048
     Dates: start: 20030801
  2. ACETYLSALICYLIC ACID SRT [Concomitant]
  3. NIFEDIPINE [Concomitant]
  4. ATENOLOL [Concomitant]
  5. LOSARTAN POTASSIUM (LOSARTAN POTASSIUM) [Concomitant]
  6. ETHYL ICOSAPENTATE (ETHYL ICOSAPENTATE) [Concomitant]
  7. TEPRENONE (TEPRENONE) [Concomitant]
  8. CARVEDILOL [Concomitant]

REACTIONS (2)
  - ANGINA UNSTABLE [None]
  - CORONARY ARTERY STENOSIS [None]
